FAERS Safety Report 19628420 (Version 1)
Quarter: 2021Q3

REPORT INFORMATION
  Report Type: Spontaneous
  Country: US (occurrence: US)
  Receive Date: 20210728
  Receipt Date: 20210728
  Transmission Date: 20211014
  Serious: No
  Sender: FDA-Public Use
  Company Number: US-SUNOVION-2021SUN002851

PATIENT
  Sex: Female

DRUGS (1)
  1. LONHALA MAGNAIR [Suspect]
     Active Substance: GLYCOPYRROLATE
     Indication: CHRONIC OBSTRUCTIVE PULMONARY DISEASE
     Dosage: 25 ?G
     Route: 055

REACTIONS (4)
  - Headache [Not Recovered/Not Resolved]
  - Nasal septum deviation [Recovered/Resolved]
  - Epistaxis [Not Recovered/Not Resolved]
  - Nasal septum perforation [Not Recovered/Not Resolved]
